FAERS Safety Report 11420076 (Version 1)
Quarter: 2015Q3

REPORT INFORMATION
  Report Type: Spontaneous
  Country: US (occurrence: None)
  Receive Date: 20150825
  Receipt Date: 20150825
  Transmission Date: 20151125
  Serious: Yes (Life-Threatening)
  Sender: FDA-Public Use
  Company Number: None

PATIENT
  Age: 81 Year
  Sex: Female
  Weight: 117.94 kg

DRUGS (28)
  1. HYDROXYCHLOROQUINE SULF (PLAQUENIL) [Concomitant]
  2. CYANOCOBALAMIN/FOLIC AC (VIT. B12) [Concomitant]
  3. HYDROCODONE [Concomitant]
     Active Substance: HYDROCODONE
  4. PRO AIR INHALOR [Concomitant]
  5. LEVOFLOXACIN 500MG [Suspect]
     Active Substance: LEVOFLOXACIN
     Indication: ATYPICAL PNEUMONIA
     Route: 048
  6. REBEPRAZOLE SODIUM (ACIPHEX) [Concomitant]
  7. ZORVOLEX [Concomitant]
     Active Substance: DICLOFENAC
  8. UBIDECARENNONE VIT E ACE (COQ10) [Concomitant]
  9. LIDOCAINE (LIDODERM PATCH) [Concomitant]
  10. NEBIVOLOL HCL (BYSTOLIC) [Concomitant]
  11. AMBIEN [Concomitant]
     Active Substance: ZOLPIDEM TARTRATE
  12. CELECOXIB (CELEBREEX) [Concomitant]
  13. BECONASE AQ [Concomitant]
     Active Substance: BECLOMETHASONE DIPROPIONATE MONOHYDRATE
  14. AMLODIPINE BESYLATE (NORVASC) [Concomitant]
  15. ATORVASTATIN CALCIUM (LIPITOR) [Concomitant]
  16. CHOLECALCIFEROL VITAMIN (VIT. D3) [Concomitant]
  17. MULTI VITAMIN [Concomitant]
     Active Substance: VITAMINS
  18. FUROSEMIDE (MAXIDE) [Concomitant]
  19. PROAIR HFA [Concomitant]
     Active Substance: ALBUTEROL SULFATE
  20. ASPIRIN. [Concomitant]
     Active Substance: ASPIRIN
  21. PREDNISONE. [Concomitant]
     Active Substance: PREDNISONE
  22. VENLAFAXINE HCL (EFFEXOR) [Concomitant]
  23. MUCINEX [Concomitant]
     Active Substance: GUAIFENESIN
  24. CLARITIN [Concomitant]
     Active Substance: LORATADINE
  25. PHILLIPS MILK OF MAGNESIA [Concomitant]
  26. METHOCARBAMOL (ROBAXIN) [Concomitant]
  27. LYRICA [Concomitant]
     Active Substance: PREGABALIN
  28. CYCLOSPORINE (RESTASIS OP) [Concomitant]

REACTIONS (16)
  - Contusion [None]
  - Rash pruritic [None]
  - Headache [None]
  - Joint swelling [None]
  - Arthralgia [None]
  - Constipation [None]
  - Neuropathy peripheral [None]
  - Pain [None]
  - Tendon disorder [None]
  - Asthenia [None]
  - Anger [None]
  - Pain in extremity [None]
  - Nausea [None]
  - Insomnia [None]
  - Feeling abnormal [None]
  - Dizziness [None]

NARRATIVE: CASE EVENT DATE: 201506
